FAERS Safety Report 6371093-X (Version None)
Quarter: 2009Q3

REPORT INFORMATION
  Report Type: 
  Country: None (occurrence: None)
  Receive Date: 20090923
  Receipt Date: 20090914
  Transmission Date: 20100115
  Serious: Yes (Hospitalization)
  Sender: FDA-Public Use
  Company Number: PHHY2009FR39653

PATIENT
  Sex: Male

DRUGS (7)
  1. TEGRETOL [Suspect]
     Dosage: 200 MG, TID
     Dates: end: 20090804
  2. FOZITEC [Suspect]
     Dosage: 1 DF, UNK
     Dates: end: 20090805
  3. FOZITEC [Suspect]
     Dosage: UNK
     Dates: start: 20090805, end: 20090807
  4. PROSCAR [Concomitant]
  5. STILNOX [Concomitant]
  6. EFFERALGAN [Concomitant]
  7. KARDEGIC [Concomitant]

REACTIONS (7)
  - CONCUSSION [None]
  - CONFUSIONAL STATE [None]
  - FALL [None]
  - HYPONATRAEMIA [None]
  - RHABDOMYOLYSIS [None]
  - SPEECH DISORDER [None]
  - WOUND [None]
